FAERS Safety Report 20304294 (Version 1)
Quarter: 2022Q1

REPORT INFORMATION
  Report Type: Spontaneous
  Country: US (occurrence: US)
  Receive Date: 20220106
  Receipt Date: 20220106
  Transmission Date: 20220423
  Serious: No
  Sender: FDA-Public Use
  Company Number: US-drreddys-LIT/USA/22/0145671

PATIENT
  Age: 35 Year
  Sex: Female

DRUGS (4)
  1. GLYCOPYRROLATE [Suspect]
     Active Substance: GLYCOPYRROLATE
     Indication: Salivary hypersecretion
  2. TROPICAMIDE [Suspect]
     Active Substance: TROPICAMIDE
     Indication: Salivary hypersecretion
  3. IPRATROPIUM [Suspect]
     Active Substance: IPRATROPIUM
     Indication: Salivary hypersecretion
     Route: 060
  4. CLOZAPINE [Concomitant]
     Active Substance: CLOZAPINE
     Indication: Schizoaffective disorder
     Dates: start: 2021

REACTIONS (2)
  - Heart rate increased [Unknown]
  - Drug ineffective [Unknown]
